FAERS Safety Report 19844001 (Version 2)
Quarter: 2021Q4

REPORT INFORMATION
  Report Type: Spontaneous
  Country: DE (occurrence: DE)
  Receive Date: 20210917
  Receipt Date: 20211108
  Transmission Date: 20220303
  Serious: Yes (Other)
  Sender: FDA-Public Use
  Company Number: DE-ALXN-A202110206

PATIENT
  Age: 63 Year
  Sex: Female

DRUGS (14)
  1. ULTOMIRIS [Suspect]
     Active Substance: RAVULIZUMAB-CWVZ
     Indication: Paroxysmal nocturnal haemoglobinuria
     Dosage: 330 ML, EVERY 2 MONTH
     Route: 065
     Dates: start: 20200116
  2. ULTOMIRIS [Suspect]
     Active Substance: RAVULIZUMAB-CWVZ
     Dosage: 330 ML, EVERY 2 MONTH
     Route: 065
     Dates: start: 202003
  3. ULTOMIRIS [Suspect]
     Active Substance: RAVULIZUMAB-CWVZ
     Dosage: 330 ML, EVERY 2 MONTH
     Route: 065
     Dates: start: 202105
  4. ULTOMIRIS [Suspect]
     Active Substance: RAVULIZUMAB-CWVZ
     Dosage: 330 ML, EVERY 2 MONTH
     Route: 065
     Dates: start: 202007
  5. ULTOMIRIS [Suspect]
     Active Substance: RAVULIZUMAB-CWVZ
     Dosage: 330 ML, EVERY 2 MONTH
     Route: 065
     Dates: start: 202009
  6. ULTOMIRIS [Suspect]
     Active Substance: RAVULIZUMAB-CWVZ
     Dosage: 330 ML, EVERY 2 MONTH
     Route: 065
     Dates: start: 202011
  7. ULTOMIRIS [Suspect]
     Active Substance: RAVULIZUMAB-CWVZ
     Dosage: 330 ML, EVERY 2 MONTH
     Route: 065
     Dates: start: 202012
  8. ULTOMIRIS [Suspect]
     Active Substance: RAVULIZUMAB-CWVZ
     Dosage: 330 ML, EVERY 2 MONTH
     Route: 065
     Dates: start: 202102
  9. ULTOMIRIS [Suspect]
     Active Substance: RAVULIZUMAB-CWVZ
     Dosage: 330 ML, EVERY 2 MONTH
     Route: 065
     Dates: start: 202104
  10. ULTOMIRIS [Suspect]
     Active Substance: RAVULIZUMAB-CWVZ
     Dosage: 330 ML, EVERY 2 MONTH
     Route: 065
     Dates: start: 202106
  11. ULTOMIRIS [Suspect]
     Active Substance: RAVULIZUMAB-CWVZ
     Dosage: 330 ML, EVERY 2 MONTH
     Route: 065
     Dates: start: 202108
  12. SOLIRIS [Suspect]
     Active Substance: ECULIZUMAB
     Indication: Paroxysmal nocturnal haemoglobinuria
     Dosage: 900 MG, Q2W
     Route: 065
     Dates: start: 201002, end: 20200116
  13. EXFORGE [Concomitant]
     Active Substance: AMLODIPINE BESYLATE\VALSARTAN
     Indication: Product used for unknown indication
     Dosage: 5 MG/160 ML, BID
     Route: 065
  14. METOPROLOL [Concomitant]
     Active Substance: METOPROLOL
     Indication: Product used for unknown indication
     Dosage: 47.5 MG, UNK
     Route: 065

REACTIONS (2)
  - Haemolysis [Recovering/Resolving]
  - Alopecia [Unknown]

NARRATIVE: CASE EVENT DATE: 20200901
